FAERS Safety Report 20205432 (Version 1)
Quarter: 2021Q4

REPORT INFORMATION
  Report Type: Spontaneous
  Country: US (occurrence: US)
  Receive Date: 20211220
  Receipt Date: 20211220
  Transmission Date: 20220303
  Serious: Yes (Other)
  Sender: FDA-Public Use
  Company Number: US-JNJFOC-20211222762

PATIENT

DRUGS (1)
  1. BENADRYL [Interacting]
     Active Substance: DIPHENHYDRAMINE HYDROCHLORIDE
     Indication: Accidental exposure to product
     Route: 048

REACTIONS (3)
  - Hallucination, visual [Unknown]
  - Drug interaction [Unknown]
  - Accidental exposure to product [Unknown]
